FAERS Safety Report 12637199 (Version 1)
Quarter: 2016Q3

REPORT INFORMATION
  Report Type: Spontaneous
  Country: US (occurrence: US)
  Receive Date: 20160809
  Receipt Date: 20160809
  Transmission Date: 20161109
  Serious: No
  Sender: FDA-Public Use
  Company Number: US-BEH-2016059381

PATIENT
  Sex: Male
  Weight: 74.84 kg

DRUGS (13)
  1. BERINERT [Suspect]
     Active Substance: HUMAN C1-ESTERASE INHIBITOR
     Indication: HEREDITARY ANGIOEDEMA
     Dosage: 1500 IU, PRN
     Route: 042
  2. KEFLEX [Concomitant]
     Active Substance: CEPHALEXIN
  3. HEPARIN [Concomitant]
     Active Substance: HEPARIN SODIUM
  4. SIMVASTATIN. [Concomitant]
     Active Substance: SIMVASTATIN
  5. PROTONIX [Concomitant]
     Active Substance: PANTOPRAZOLE SODIUM
  6. BUPROPION. [Concomitant]
     Active Substance: BUPROPION
  7. BERINERT [Suspect]
     Active Substance: HUMAN C1-ESTERASE INHIBITOR
     Indication: HEREDITARY ANGIOEDEMA
     Dosage: 1500 IU, PRN (500 UNIT VIAL)
     Route: 042
  8. SODIUM CHLORIDE. [Concomitant]
     Active Substance: SODIUM CHLORIDE
  9. MULTIVITAMINS [Concomitant]
     Active Substance: VITAMINS
  10. PRILOSEC [Concomitant]
     Active Substance: OMEPRAZOLE MAGNESIUM
  11. STERILE WATER [Concomitant]
     Active Substance: WATER
  12. EPIPEN [Concomitant]
     Active Substance: EPINEPHRINE
  13. TESTIM [Concomitant]
     Active Substance: TESTOSTERONE

REACTIONS (1)
  - Catheter site infection [Recovered/Resolved]
